FAERS Safety Report 14410566 (Version 1)
Quarter: 2018Q1

REPORT INFORMATION
  Report Type: Spontaneous
  Country: US (occurrence: US)
  Receive Date: 20180117
  Receipt Date: 20180117
  Transmission Date: 20180509
  Serious: Yes (Hospitalization)
  Sender: FDA-Public Use
  Company Number: None

PATIENT
  Age: 44 Year
  Sex: Male
  Weight: 106.1 kg

DRUGS (1)
  1. PANTOPRAZOLE [Suspect]
     Active Substance: PANTOPRAZOLE
     Route: 042
     Dates: start: 20140103, end: 20180114

REACTIONS (7)
  - Tubulointerstitial nephritis [None]
  - Hepatorenal syndrome [None]
  - Acute kidney injury [None]
  - Therapy cessation [None]
  - Cough [None]
  - Dyspnoea [None]
  - Lower respiratory tract congestion [None]

NARRATIVE: CASE EVENT DATE: 20180102
